FAERS Safety Report 18725612 (Version 1)
Quarter: 2021Q1

REPORT INFORMATION
  Report Type: Spontaneous
  Country: CA (occurrence: CA)
  Receive Date: 20210111
  Receipt Date: 20210111
  Transmission Date: 20210419
  Serious: Yes (Other)
  Sender: FDA-Public Use
  Company Number: CA-JNJFOC-20210108610

PATIENT
  Age: 27 Year
  Sex: Male
  Weight: 66 kg

DRUGS (3)
  1. PENTASA [Concomitant]
     Active Substance: MESALAMINE
  2. REMICADE [Suspect]
     Active Substance: INFLIXIMAB
     Indication: CROHN^S DISEASE
     Route: 042
  3. AMOXICILLIN TRIHYDRATE;CLAVULANATE POTASSIUM [Concomitant]
     Active Substance: AMOXICILLIN\CLAVULANATE POTASSIUM

REACTIONS (3)
  - Anal fistula [Unknown]
  - Anal abscess [Unknown]
  - Therapeutic response unexpected [Unknown]
